FAERS Safety Report 5760241-8 (Version None)
Quarter: 2008Q2

REPORT INFORMATION
  Report Type: 
  Country: None (occurrence: None)
  Receive Date: 20080605
  Receipt Date: 20080522
  Transmission Date: 20081010
  Serious: Yes (Other)
  Sender: FDA-Public Use
  Company Number: DE-GENENTECH-262031

PATIENT
  Sex: Female
  Weight: 60 kg

DRUGS (6)
  1. AVASTIN [Suspect]
     Indication: NON-SMALL CELL LUNG CANCER
     Dosage: 400 MG, UNK
     Route: 042
     Dates: start: 20070912
  2. TARCEVA [Suspect]
     Indication: NON-SMALL CELL LUNG CANCER
     Dosage: 100 MG, QD
     Dates: start: 20070801, end: 20070824
  3. GEMCITABINE [Suspect]
     Indication: NON-SMALL CELL LUNG CANCER
     Dosage: 600 MG, UNK
     Route: 042
     Dates: start: 20070904, end: 20080307
  4. GEMCITABINE [Suspect]
     Dosage: 1000 MG, UNK
     Route: 042
     Dates: start: 20080125
  5. TAXOTERE [Suspect]
     Indication: NON-SMALL CELL LUNG CANCER
     Dosage: 40 MG, UNK
     Dates: start: 20070904, end: 20071001
  6. PEMETREXED [Suspect]
     Indication: NON-SMALL CELL LUNG CANCER
     Dosage: 500 MG, Q3W
     Route: 042
     Dates: start: 20080328

REACTIONS (2)
  - BLINDNESS [None]
  - POLYNEUROPATHY [None]
